FAERS Safety Report 9732694 (Version 1)
Quarter: 2013Q4

REPORT INFORMATION
  Report Type: Spontaneous
  Country: ES (occurrence: ES)
  Receive Date: 20131205
  Receipt Date: 20131205
  Transmission Date: 20140711
  Serious: Yes (Hospitalization)
  Sender: FDA-Public Use
  Company Number: ES-TEVA-446422ISR

PATIENT
  Age: 71 Year
  Sex: Male

DRUGS (3)
  1. EPIRUBICINA TEVA 2 MG/ML SOLUCION INYECTABLE Y PARA PERFUSION EFG [Suspect]
     Indication: ADENOCARCINOMA GASTRIC
     Route: 042
     Dates: start: 20130920, end: 20130920
  2. OXALIPLATINO TEVA 5 MG/ML CONCENTRADO PARA SOLUCI?N PARA PERFUSION [Suspect]
     Indication: ADENOCARCINOMA GASTRIC
     Route: 042
     Dates: start: 20130920, end: 20130920
  3. XELODA 500 MG COMPRIMIDOS RECUBIERTOS CON PELICULA [Suspect]
     Indication: ADENOCARCINOMA GASTRIC
     Dosage: 2000 MILLIGRAM DAILY;
     Route: 048
     Dates: start: 20130920

REACTIONS (2)
  - Neutropenia [Recovered/Resolved]
  - Rectal tenesmus [Unknown]
